FAERS Safety Report 8923090 (Version 1)
Quarter: 2012Q4

REPORT INFORMATION
  Report Type: Spontaneous
  Country: US (occurrence: None)
  Receive Date: 20121115
  Receipt Date: 20121115
  Transmission Date: 20130627
  Serious: No
  Sender: FDA-Public Use
  Company Number: C-12-075

PATIENT
  Sex: Female

DRUGS (1)
  1. PHENTERMINE [Suspect]
     Indication: OBESITY
     Dosage: 45 mg - qam - oral
     Route: 048

REACTIONS (1)
  - Drug effect decreased [None]
